FAERS Safety Report 6989164 (Version 29)
Quarter: 2013Q2

REPORT INFORMATION
  Report Type: Report from Study
  Country: CA (occurrence: CA)
  Receive Date: 20090507
  Receipt Date: 20130523
  Transmission Date: 20140414
  Serious: Yes (Hospitalization, Other)
  Sender: FDA-Public Use
  Company Number: PHHY2009CA16718

PATIENT
  Sex: Female

DRUGS (4)
  1. SANDOSTATIN LAR [Suspect]
     Indication: CARCINOID TUMOUR
     Dosage: 40 MG, EVERY 3 WEEKS
     Route: 030
     Dates: start: 20071115
  2. SANDOSTATIN LAR [Suspect]
     Dosage: 60 MG, EVERY 03 WEEKS
     Route: 030
  3. SANDOSTATIN LAR [Suspect]
     Dosage: 30 MG, EVERY 4 WEEKS
     Route: 030
  4. SANDOSTATIN LAR [Suspect]
     Dosage: 60 MG, EVERY 3 WEEKS
     Route: 030

REACTIONS (26)
  - Labyrinthitis [Unknown]
  - Hypertension [Unknown]
  - Vertigo [Unknown]
  - Blood pressure systolic increased [Unknown]
  - Blood pressure diastolic decreased [Unknown]
  - Gout [Unknown]
  - Oedema peripheral [Unknown]
  - Sciatic nerve injury [Unknown]
  - Injection site mass [Recovered/Resolved]
  - Neuralgia [Unknown]
  - Lower respiratory tract infection [Unknown]
  - Tension [Unknown]
  - Arthralgia [Unknown]
  - Musculoskeletal discomfort [Unknown]
  - Feeling hot [Unknown]
  - Tenderness [Unknown]
  - Body temperature decreased [Unknown]
  - Asthenia [Unknown]
  - Back pain [Unknown]
  - Dizziness [Recovering/Resolving]
  - Abdominal distension [Not Recovered/Not Resolved]
  - Pruritus [Unknown]
  - Fatigue [Unknown]
  - Injection site pain [Unknown]
  - Flank pain [Unknown]
  - Abdominal tenderness [Unknown]
